FAERS Safety Report 6938049-7 (Version None)
Quarter: 2010Q3

REPORT INFORMATION
  Report Type: 
  Country: None (occurrence: None)
  Receive Date: 20100817
  Receipt Date: 20100805
  Transmission Date: 20110219
  Serious: Yes (Other)
  Sender: FDA-Public Use
  Company Number: 2010AP001688

PATIENT
  Age: 28 Year
  Sex: Female

DRUGS (1)
  1. RISPERIDONE [Suspect]
     Dosage: 90 MG

REACTIONS (11)
  - DYSARTHRIA [None]
  - DYSPNOEA [None]
  - DYSTONIA [None]
  - INTENTIONAL DRUG MISUSE [None]
  - LOCAL SWELLING [None]
  - MUSCLE SPASMS [None]
  - OVERDOSE [None]
  - SELF-MEDICATION [None]
  - SINUS TACHYCARDIA [None]
  - SWELLING FACE [None]
  - SWOLLEN TONGUE [None]
